FAERS Safety Report 23667536 (Version 1)
Quarter: 2024Q1

REPORT INFORMATION
  Report Type: Spontaneous
  Country: CA (occurrence: CA)
  Receive Date: 20240325
  Receipt Date: 20240325
  Transmission Date: 20240410
  Serious: Yes (Death, Other)
  Sender: FDA-Public Use
  Company Number: CA-BRISTOL-MYERS SQUIBB COMPANY-2024-044697

PATIENT
  Age: 75 Year
  Sex: Female
  Weight: 82 kg

DRUGS (10)
  1. PACLITAXEL [Suspect]
     Active Substance: PACLITAXEL
     Indication: Ovarian cancer
     Dosage: SOLUTION INTRAVENOUS
     Route: 042
  2. CARBOPLATIN [Concomitant]
     Active Substance: CARBOPLATIN
     Indication: Ovarian cancer
     Dosage: INJECTION BP
     Route: 042
  3. DEXAMETHASONE [Concomitant]
     Active Substance: DEXAMETHASONE
     Indication: Product used for unknown indication
  4. FOSAPREPITANT [Concomitant]
     Active Substance: FOSAPREPITANT
     Indication: Product used for unknown indication
     Dosage: SINGLEDOSE VIAL, POWDER FOR SOLUTION
     Route: 042
  5. METOPROLOL [Concomitant]
     Active Substance: METOPROLOL
     Indication: Product used for unknown indication
     Dosage: TABLET (EXTENDED-RELEASE)
  6. ONDANSETRON [Concomitant]
     Active Substance: ONDANSETRON
     Indication: Product used for unknown indication
  7. PROCHLORPERAZINE [Concomitant]
     Active Substance: PROCHLORPERAZINE
     Indication: Product used for unknown indication
  8. ACETAMINOPHEN [Concomitant]
     Active Substance: ACETAMINOPHEN
     Indication: Product used for unknown indication
  9. RIVAROXABAN [Concomitant]
     Active Substance: RIVAROXABAN
     Indication: Product used for unknown indication
  10. VITAMINS [Concomitant]
     Active Substance: VITAMINS
     Indication: Product used for unknown indication

REACTIONS (2)
  - Death [Fatal]
  - Off label use [Unknown]
